FAERS Safety Report 17510926 (Version 1)
Quarter: 2020Q1

REPORT INFORMATION
  Report Type: Spontaneous
  Country: US (occurrence: US)
  Receive Date: 20200306
  Receipt Date: 20200306
  Transmission Date: 20200409
  Serious: No
  Sender: FDA-Public Use
  Company Number: US-HARMONY BIOSCIENCES-2020HMY00024

PATIENT
  Age: 29 Year
  Sex: Female
  Weight: 61.22 kg

DRUGS (8)
  1. WAKIX [Suspect]
     Active Substance: PITOLISANT HYDROCHLORIDE
     Indication: NARCOLEPSY
     Dosage: 35.6 MG, 1X/DAY
     Route: 048
     Dates: start: 201910, end: 20200106
  2. WAKIX [Suspect]
     Active Substance: PITOLISANT HYDROCHLORIDE
     Indication: CATAPLEXY
     Dosage: 35.6 MG, 1X/DAY
     Route: 048
     Dates: start: 20200110
  3. VITAMIN B12 [Concomitant]
     Active Substance: CYANOCOBALAMIN
  4. XYREM [Concomitant]
     Active Substance: SODIUM OXYBATE
  5. PRENATAL VITAMIN [Concomitant]
     Active Substance: VITAMINS
  6. PROBIOTICS [Concomitant]
     Active Substance: PROBIOTICS NOS
  7. COENZYME Q10 [Concomitant]
     Active Substance: UBIDECARENONE
  8. COMPLETE OMEGA [Concomitant]

REACTIONS (5)
  - Product dose omission [Recovered/Resolved]
  - Influenza [Recovering/Resolving]
  - Hypersomnia [Recovering/Resolving]
  - Cough [Recovering/Resolving]
  - Pyrexia [Recovering/Resolving]

NARRATIVE: CASE EVENT DATE: 20200106
